FAERS Safety Report 10476109 (Version 2)
Quarter: 2014Q4

REPORT INFORMATION
  Report Type: Spontaneous
  Country: US (occurrence: None)
  Receive Date: 20140923
  Receipt Date: 20141110
  Transmission Date: 20150528
  Serious: Yes (Other)
  Sender: FDA-Public Use
  Company Number: 2014VER00223

PATIENT
  Age: 16 Year
  Sex: Male
  Weight: 86.2 kg

DRUGS (1)
  1. MYORISAN [Suspect]
     Active Substance: ISOTRETINOIN
     Indication: ACNE CYSTIC
     Route: 048
     Dates: start: 20140714, end: 20140822

REACTIONS (2)
  - Back pain [None]
  - Irritability [None]

NARRATIVE: CASE EVENT DATE: 2014
